FAERS Safety Report 11292279 (Version 1)
Quarter: 2015Q3

REPORT INFORMATION
  Report Type: Spontaneous
  Country: US (occurrence: None)
  Receive Date: 20150721
  Receipt Date: 20150721
  Transmission Date: 20151125
  Serious: No
  Sender: FDA-Public Use
  Company Number: None

PATIENT
  Age: 61 Year
  Sex: Male

DRUGS (1)
  1. PHENYTOIN. [Suspect]
     Active Substance: PHENYTOIN
     Indication: SEIZURE
     Route: 048
     Dates: start: 20100212, end: 20100326

REACTIONS (4)
  - Drug reaction with eosinophilia and systemic symptoms [None]
  - Rash [None]
  - Eosinophilia [None]
  - Drug hypersensitivity [None]

NARRATIVE: CASE EVENT DATE: 20100329
